FAERS Safety Report 7402243-1 (Version None)
Quarter: 2011Q2

REPORT INFORMATION
  Report Type: 
  Country: None (occurrence: None)
  Receive Date: 20110408
  Receipt Date: 20110328
  Transmission Date: 20111010
  Serious: Yes (Hospitalization, Other)
  Sender: FDA-Public Use
  Company Number: FR-PFIZER INC-2011075968

PATIENT
  Age: 64 Year
  Sex: Male

DRUGS (9)
  1. PREVISCAN [Concomitant]
  2. FUROSEMIDE [Concomitant]
  3. DRONEDARONE [Suspect]
     Indication: ATRIAL FIBRILLATION
     Dosage: 400 MG, 2X/DAY
     Route: 048
     Dates: start: 20110119, end: 20110222
  4. CORDARONE [Suspect]
     Dosage: 200 MG, DAILY
  5. ZESTRIL [Concomitant]
  6. LEVOTHYROX [Concomitant]
  7. BISOPROLOL [Concomitant]
  8. CORDARONE [Suspect]
     Indication: ATRIAL FIBRILLATION
     Dosage: 400 MG, DAILY
     Route: 048
     Dates: end: 20110119
  9. DIFFU K [Concomitant]

REACTIONS (3)
  - INTERSTITIAL LUNG DISEASE [None]
  - HYPOTHYROIDISM [None]
  - PULMONARY ARTERIAL HYPERTENSION [None]
